FAERS Safety Report 5543267-9 (Version None)
Quarter: 2007Q4

REPORT INFORMATION
  Report Type: 
  Country: None (occurrence: None)
  Receive Date: 20071206
  Receipt Date: 20071121
  Transmission Date: 20080405
  Serious: Yes (Hospitalization)
  Sender: FDA-Public Use
  Company Number: 021162

PATIENT
  Age: 53 Year
  Sex: Female
  Weight: 60.8 kg

DRUGS (1)
  1. OXYBUTYNIN CHLORIDE [Suspect]
     Dosage: 3.9 MG/DAY, QD, TRANSDERMAL
     Route: 062
     Dates: start: 20070915, end: 20071006

REACTIONS (5)
  - FOLLICULITIS [None]
  - HYPERHIDROSIS [None]
  - NON-CARDIAC CHEST PAIN [None]
  - PRURITUS [None]
  - URTICARIA [None]
